FAERS Safety Report 7822041-4 (Version None)
Quarter: 2011Q4

REPORT INFORMATION
  Report Type: 
  Country: None (occurrence: None)
  Receive Date: 20111018
  Receipt Date: 20111011
  Transmission Date: 20120403
  Serious: Yes (Death, Other)
  Sender: FDA-Public Use
  Company Number: PHHY2011CO78496

PATIENT
  Sex: Male

DRUGS (1)
  1. EXJADE [Suspect]
     Indication: IRON OVERLOAD
     Dosage: 250 MG, UNK
     Dates: start: 20110701

REACTIONS (5)
  - SPLENOMEGALY [None]
  - JAUNDICE [None]
  - TREATMENT FAILURE [None]
  - IRON OVERLOAD [None]
  - HEPATOMEGALY [None]
